FAERS Safety Report 18756272 (Version 1)
Quarter: 2021Q1

REPORT INFORMATION
  Report Type: Report from Study
  Country: AR (occurrence: AR)
  Receive Date: 20210119
  Receipt Date: 20210119
  Transmission Date: 20210419
  Serious: Yes (Other)
  Sender: FDA-Public Use
  Company Number: AR-BIOGEN-2020BI00954499

PATIENT
  Age: 1 Year
  Sex: Female

DRUGS (3)
  1. SPINRAZA [Suspect]
     Active Substance: NUSINERSEN
     Dosage: LOADING DOSE
     Route: 037
     Dates: start: 20200304, end: 20200408
  2. SPINRAZA [Suspect]
     Active Substance: NUSINERSEN
     Dosage: MAINTENAINCE DOSE
     Route: 037
     Dates: start: 20200408, end: 20200806
  3. SPINRAZA [Suspect]
     Active Substance: NUSINERSEN
     Indication: SPINAL MUSCULAR ATROPHY
     Dosage: LOADING DOSE
     Route: 037
     Dates: start: 20200205, end: 20200304

REACTIONS (5)
  - Drug ineffective [Not Recovered/Not Resolved]
  - Quadriplegia [Unknown]
  - Functional gastrointestinal disorder [Unknown]
  - Respiratory disorder [Unknown]
  - Nosocomial infection [Unknown]

NARRATIVE: CASE EVENT DATE: 202011
